FAERS Safety Report 24320034 (Version 2)
Quarter: 2024Q4

REPORT INFORMATION
  Report Type: Report from Study
  Country: ZA (occurrence: ZA)
  Receive Date: 20240914
  Receipt Date: 20241209
  Transmission Date: 20250115
  Serious: Yes (Hospitalization, Other)
  Sender: ALEXION PHARMACEUTICALS
  Company Number: 2024A205425

PATIENT
  Age: 64 Year

DRUGS (16)
  1. BUDESONIDE\FORMOTEROL [Suspect]
     Active Substance: BUDESONIDE\FORMOTEROL
     Indication: Asthma
  2. BUDESONIDE\FORMOTEROL [Suspect]
     Active Substance: BUDESONIDE\FORMOTEROL
  3. BUDESONIDE\FORMOTEROL [Suspect]
     Active Substance: BUDESONIDE\FORMOTEROL
  4. BUDESONIDE\FORMOTEROL [Suspect]
     Active Substance: BUDESONIDE\FORMOTEROL
  5. AMLODIPINE BESYLATE\INDAPAMIDE\PERINDOPRIL ARGININE [Concomitant]
     Active Substance: AMLODIPINE BESYLATE\INDAPAMIDE\PERINDOPRIL ARGININE
     Indication: Hypertension
     Dosage: 10/2.5/10 MG
     Route: 048
  6. AMLODIPINE BESYLATE\INDAPAMIDE\PERINDOPRIL ARGININE [Concomitant]
     Active Substance: AMLODIPINE BESYLATE\INDAPAMIDE\PERINDOPRIL ARGININE
     Dosage: 10/2.5/10 MG
  7. ADCO DOL [Concomitant]
     Route: 048
  8. ADCO DOL [Concomitant]
  9. MYPAID FORTE [Concomitant]
     Active Substance: ACETAMINOPHEN\IBUPROFEN
     Route: 048
  10. MYPAID FORTE [Concomitant]
     Active Substance: ACETAMINOPHEN\IBUPROFEN
  11. FLUOXETINE ZYDUS [Concomitant]
     Dosage: 20 MILLIGRAM, UNK
     Route: 048
  12. FLUOXETINE ZYDUS [Concomitant]
     Dosage: 20 MILLIGRAM, UNK
  13. LIPOGEN [Concomitant]
     Indication: Blood cholesterol
     Dosage: 20 MILLIGRAM, UNK
     Route: 048
  14. LIPOGEN [Concomitant]
     Dosage: 20 MILLIGRAM, UNK
  15. CLOBAZAM [Concomitant]
     Active Substance: CLOBAZAM
     Indication: Anxiety
     Dosage: 10 MILLIGRAM, UNK
     Route: 048
  16. CLOBAZAM [Concomitant]
     Active Substance: CLOBAZAM
     Dosage: 10 MILLIGRAM, UNK

REACTIONS (3)
  - Hand fracture [Unknown]
  - Syncope [Unknown]
  - Fall [Unknown]
